FAERS Safety Report 13801397 (Version 1)
Quarter: 2017Q3

REPORT INFORMATION
  Report Type: Spontaneous
  Country: FR (occurrence: FR)
  Receive Date: 20170727
  Receipt Date: 20170727
  Transmission Date: 20171127
  Serious: Yes (Other)
  Sender: FDA-Public Use
  Company Number: FR-PFIZER INC-2017317332

PATIENT
  Sex: Female

DRUGS (2)
  1. TRIFLUCAN [Suspect]
     Active Substance: FLUCONAZOLE
     Dosage: UNK
  2. TRIFLUCAN [Suspect]
     Active Substance: FLUCONAZOLE
     Dosage: 100 MG, UNK

REACTIONS (1)
  - Spontaneous haematoma [Unknown]
